FAERS Safety Report 5207482-6 (Version None)
Quarter: 2006Q4

REPORT INFORMATION
  Report Type: 
  Country: None (occurrence: None)
  Receive Date: 20061030
  Receipt Date: 20060306
  Transmission Date: 20070319
  Serious: No
  Sender: FDA-Public Use
  Company Number: 2006CT000506

PATIENT
  Age: 68 Year
  Sex: Male
  Weight: 83.9154 kg

DRUGS (14)
  1. VENTAVIS [Suspect]
     Indication: PULMONARY HYPERTENSION
     Dosage: 2.5 UG;6XD;INH
     Route: 055
     Dates: start: 20060208
  2. AMLODIPINE BESYLATE [Concomitant]
  3. WARFARIN SODIUM [Concomitant]
  4. ASPIRIN [Concomitant]
  5. FUROSEMIDE [Concomitant]
  6. OXYGEN [Concomitant]
  7. AVANDIA [Concomitant]
  8. AMBIEN [Concomitant]
  9. AMARYL [Concomitant]
  10. ZOLOFT [Concomitant]
  11. PANTOPRAZOLE SODIUM [Concomitant]
  12. SYNTHROID [Concomitant]
  13. DILAUDID [Concomitant]
  14. OXYCONTIN [Concomitant]

REACTIONS (1)
  - VISION BLURRED [None]
